FAERS Safety Report 6961658-6 (Version None)
Quarter: 2010Q3

REPORT INFORMATION
  Report Type: 
  Country: None (occurrence: None)
  Receive Date: 20100901
  Receipt Date: 20100824
  Transmission Date: 20110219
  Serious: No
  Sender: FDA-Public Use
  Company Number: US-US-EMD SERONO, INC.-7015787

PATIENT
  Sex: Female
  Weight: 82 kg

DRUGS (12)
  1. REBIF [Suspect]
     Indication: MULTIPLE SCLEROSIS
     Route: 058
     Dates: start: 20080125
  2. TYLENOL-500 [Concomitant]
     Indication: PREMEDICATION
  3. POTASSIUM [Concomitant]
     Indication: BLOOD POTASSIUM DECREASED
     Dates: start: 20030101
  4. HYDROCHLOROTHIAZIDE [Concomitant]
     Indication: HYPERTENSION
  5. ALPRAZOLAM [Concomitant]
     Indication: MULTIPLE SCLEROSIS
  6. AMANTADINE [Concomitant]
     Indication: MULTIPLE SCLEROSIS
  7. LYRICA [Concomitant]
     Indication: PAIN IN EXTREMITY
  8. CYMBALTA [Concomitant]
     Indication: PAIN IN EXTREMITY
  9. TIZANIDINE HCL [Concomitant]
     Indication: MYALGIA
  10. TIZANIDINE HCL [Concomitant]
     Indication: INSOMNIA
  11. VITAMIN B [Concomitant]
  12. VITAMIN D [Concomitant]

REACTIONS (5)
  - BLOOD POTASSIUM DECREASED [None]
  - CHILLS [None]
  - NOCTURIA [None]
  - RENAL FAILURE [None]
  - TREMOR [None]
